FAERS Safety Report 8340426-7 (Version None)
Quarter: 2012Q2

REPORT INFORMATION
  Report Type: 
  Country: None (occurrence: None)
  Receive Date: 20120507
  Receipt Date: 20120507
  Transmission Date: 20120825
  Serious: Yes (Death, Life-Threatening, Hospitalization)
  Sender: FDA-Public Use
  Company Number: None

PATIENT
  Age: 71 Year
  Sex: Female
  Weight: 86.182 kg

DRUGS (7)
  1. ALDACTONE [Concomitant]
     Route: 048
  2. FOLIC ACID [Concomitant]
     Route: 048
  3. SULFAMETHOXAZOLE AND TRIMETHOPRIM [Suspect]
     Indication: URINARY TRACT INFECTION
     Dosage: |DOSAGETEXT: 20 ML||STRENGTH: 200 MG/40 MG PER 5 ML||FREQ: TWICE DAILY||ROUTE: ORAL|
     Route: 048
     Dates: start: 20120202, end: 20120206
  4. ATENOLOL [Concomitant]
     Route: 048
  5. TRIAMTERENE AND HYDROCHLOROTHIAZIDE [Concomitant]
     Route: 048
  6. VITAMIN B-12 [Concomitant]
     Route: 042
  7. PEPCID [Concomitant]
     Route: 048

REACTIONS (2)
  - DISORIENTATION [None]
  - ACUTE HEPATIC FAILURE [None]
